FAERS Safety Report 5223169-8 (Version None)
Quarter: 2007Q1

REPORT INFORMATION
  Report Type: 
  Country: None (occurrence: None)
  Receive Date: 20070124
  Receipt Date: 20070112
  Transmission Date: 20070707
  Serious: Yes (Disabling)
  Sender: FDA-Public Use
  Company Number: FSC_0038_2007

PATIENT
  Age: 78 Year
  Sex: Female

DRUGS (2)
  1. SECURON [Suspect]
     Indication: HYPERTENSION
     Dosage: 120 MG QDAY PO
     Route: 048
     Dates: start: 19980101
  2. INDAPAMIDE [Concomitant]

REACTIONS (1)
  - NEUROPATHY PERIPHERAL [None]
